FAERS Safety Report 8398943-X (Version None)
Quarter: 2012Q2

REPORT INFORMATION
  Report Type: 
  Country: None (occurrence: None)
  Receive Date: 20120531
  Receipt Date: 20120522
  Transmission Date: 20120825
  Serious: Yes (Other)
  Sender: FDA-Public Use
  Company Number: US-ALLERGAN-1207226US

PATIENT
  Age: 77 Year
  Sex: Female

DRUGS (4)
  1. RESTASIS [Suspect]
     Indication: DRY EYE
     Dosage: 2 GTT, BID
     Route: 047
  2. PROPYLENE GLYCOL [Concomitant]
     Indication: DRY EYE
     Route: 047
  3. GENTEAL [Concomitant]
     Indication: DRY EYE
  4. BLANK GEL TEARS [Concomitant]
     Indication: DRY EYE

REACTIONS (3)
  - BASAL CELL CARCINOMA [None]
  - VISION BLURRED [None]
  - INSTILLATION SITE PAIN [None]
